FAERS Safety Report 11142435 (Version 1)
Quarter: 2015Q2

REPORT INFORMATION
  Report Type: Report from Study
  Country: US (occurrence: US)
  Receive Date: 20150527
  Receipt Date: 20150527
  Transmission Date: 20150821
  Serious: Yes (Other)
  Sender: FDA-Public Use
  Company Number: PHEH2014US026105

PATIENT
  Sex: Female

DRUGS (5)
  1. AFINITOR [Suspect]
     Active Substance: EVEROLIMUS
     Dosage: 10 MG, QOD
     Route: 048
  2. AFINITOR [Suspect]
     Active Substance: EVEROLIMUS
     Indication: MALIGNANT NIPPLE NEOPLASM
     Dosage: 10 MG, QD
     Route: 048
     Dates: start: 20141202
  3. EXEMESTANE. [Concomitant]
     Active Substance: EXEMESTANE
     Indication: PRODUCT USED FOR UNKNOWN INDICATION
     Route: 065
  4. AFINITOR [Suspect]
     Active Substance: EVEROLIMUS
     Dosage: UNK
     Route: 065
  5. AFINITOR [Suspect]
     Active Substance: EVEROLIMUS
     Dosage: AFINITOR WAS STARTED AT 50 PERCENT
     Route: 065

REACTIONS (6)
  - Pleural effusion [Unknown]
  - Second primary malignancy [Unknown]
  - Stomatitis [Unknown]
  - Lung neoplasm malignant [Unknown]
  - Pulmonary oedema [Unknown]
  - Oral mucosal blistering [Recovered/Resolved]
